FAERS Safety Report 23426679 (Version 2)
Quarter: 2024Q1

REPORT INFORMATION
  Report Type: Report from Study
  Country: CA (occurrence: CA)
  Receive Date: 20240122
  Receipt Date: 20240214
  Transmission Date: 20240410
  Serious: Yes (Other)
  Sender: FDA-Public Use
  Company Number: CA-JNJFOC-20240132678

PATIENT
  Age: 54 Year
  Sex: Female

DRUGS (7)
  1. MACITENTAN [Suspect]
     Active Substance: MACITENTAN
     Indication: Pulmonary hypertension
     Route: 048
     Dates: start: 20240101
  2. MACITENTAN [Suspect]
     Active Substance: MACITENTAN
     Route: 048
  3. ADCIRCA [Concomitant]
     Active Substance: TADALAFIL
  4. FUROSEMIDE [Concomitant]
     Active Substance: FUROSEMIDE
  5. SYNTHROID [Concomitant]
     Active Substance: LEVOTHYROXINE SODIUM
  6. CETIRIZINE HYDROCHLORIDE [Concomitant]
     Active Substance: CETIRIZINE HYDROCHLORIDE
  7. ADVIL [Concomitant]
     Active Substance: IBUPROFEN

REACTIONS (7)
  - Blood pressure decreased [Not Recovered/Not Resolved]
  - Headache [Not Recovered/Not Resolved]
  - Palpitations [Not Recovered/Not Resolved]
  - Dizziness [Not Recovered/Not Resolved]
  - Confusional state [Not Recovered/Not Resolved]
  - Vision blurred [Not Recovered/Not Resolved]
  - Off label use [Unknown]
